FAERS Safety Report 9460337 (Version 1)
Quarter: 2013Q3

REPORT INFORMATION
  Report Type: Spontaneous
  Country: US (occurrence: US)
  Receive Date: 20130815
  Receipt Date: 20130815
  Transmission Date: 20140515
  Serious: No
  Sender: FDA-Public Use
  Company Number: US-PFIZER INC-2013235264

PATIENT
  Sex: Male

DRUGS (7)
  1. LIPITOR [Suspect]
     Dosage: UNK
  2. SPIRONOLACTONE [Suspect]
     Dosage: UNK
  3. FLEXERIL [Suspect]
     Dosage: UNK
  4. CRESTOR [Suspect]
     Dosage: UNK
  5. AMOXICILLIN [Suspect]
     Dosage: UNK
  6. CLONIDINE [Suspect]
     Dosage: UNK
  7. DICYCLOMINE [Suspect]
     Dosage: UNK

REACTIONS (1)
  - Drug hypersensitivity [Unknown]
